FAERS Safety Report 8908820 (Version 2)
Quarter: 2012Q4

REPORT INFORMATION
  Report Type: Report from Study
  Country: DE (occurrence: DE)
  Receive Date: 20121114
  Receipt Date: 20121206
  Transmission Date: 20130627
  Serious: Yes (Death)
  Sender: FDA-Public Use
  Company Number: DE-ROCHE-1154527

PATIENT
  Sex: Male

DRUGS (2)
  1. RANIBIZUMAB [Suspect]
     Indication: DIABETIC RETINAL OEDEMA
     Route: 050
     Dates: start: 20120617
  2. RANIBIZUMAB [Suspect]
     Indication: VISUAL IMPAIRMENT

REACTIONS (4)
  - Sepsis [Fatal]
  - Renal failure [Fatal]
  - Pulmonary embolism [Fatal]
  - Cardiac arrest [Fatal]
